FAERS Safety Report 6477935-1 (Version None)
Quarter: 2009Q4

REPORT INFORMATION
  Report Type: 
  Country: None (occurrence: None)
  Receive Date: 20091207
  Receipt Date: 20091201
  Transmission Date: 20100525
  Serious: Yes (Other)
  Sender: FDA-Public Use
  Company Number: A0832516A

PATIENT
  Age: 45 Year
  Sex: Female

DRUGS (2)
  1. LAMOTRIGINE [Suspect]
     Indication: EPILEPSY
     Dosage: 150MG UNKNOWN
     Route: 048
  2. ATIVAN [Concomitant]

REACTIONS (3)
  - CONVULSION [None]
  - DISSOCIATION [None]
  - MOUTH INJURY [None]
